FAERS Safety Report 5910845-4 (Version None)
Quarter: 2008Q4

REPORT INFORMATION
  Report Type: 
  Country: None (occurrence: None)
  Receive Date: 20081007
  Receipt Date: 20080925
  Transmission Date: 20090506
  Serious: Yes (Death)
  Sender: FDA-Public Use
  Company Number: US-WYE-H06141308

PATIENT
  Sex: Female
  Weight: 57.2 kg

DRUGS (10)
  1. PHENERGAN HCL [Suspect]
     Dosage: UNSPECIFIED
     Dates: end: 20080509
  2. PERCOCET [Suspect]
     Indication: PAIN
     Dosage: 1 TAB EVERY 4-6 HOURS PRN
     Route: 048
     Dates: end: 20080509
  3. TRAZODONE HCL [Suspect]
     Route: 048
     Dates: end: 20080509
  4. RANITIDINE [Suspect]
     Dosage: UNSPECIFIED
     Dates: end: 20080509
  5. MEPROBAMATE [Suspect]
     Dosage: UNSPECIFIED
     Dates: end: 20080509
  6. KLONOPIN [Suspect]
     Route: 048
     Dates: end: 20080509
  7. LITHIUM [Suspect]
     Route: 048
     Dates: end: 20080509
  8. ONDANSETRON [Suspect]
     Dosage: UNSPECIFIED
     Dates: end: 20080509
  9. KADIAN [Suspect]
     Indication: BACK PAIN
     Route: 048
     Dates: start: 20080424, end: 20080509
  10. ZOLPIDEM [Suspect]
     Dosage: UNSPECIFIED
     Dates: end: 20080509

REACTIONS (2)
  - DRUG TOXICITY [None]
  - SYNCOPE [None]
